FAERS Safety Report 6288897-4 (Version None)
Quarter: 2009Q3

REPORT INFORMATION
  Report Type: 
  Country: None (occurrence: None)
  Receive Date: 20090729
  Receipt Date: 20070905
  Transmission Date: 20100115
  Serious: Yes (Hospitalization)
  Sender: FDA-Public Use
  Company Number: US-ASTRAZENECA-2006UW10953

PATIENT
  Age: 16776 Day
  Sex: Male
  Weight: 95.3 kg

DRUGS (14)
  1. SEROQUEL [Suspect]
     Indication: DEPRESSION
     Route: 048
     Dates: start: 20010101, end: 20040905
  2. SEROQUEL [Suspect]
     Dosage: 100-300 MG
     Route: 048
     Dates: start: 20040531
  3. ZYPREXA [Suspect]
  4. GEODON [Concomitant]
  5. DETROL [Concomitant]
  6. LEXAPRO [Concomitant]
  7. AMBIEN [Concomitant]
  8. AMARYL [Concomitant]
  9. LAMICTAL [Concomitant]
  10. ACTOS [Concomitant]
  11. ANZEMET [Concomitant]
  12. NEURONTIN [Concomitant]
  13. LANTUS [Concomitant]
  14. TYLENOL (CAPLET) [Concomitant]

REACTIONS (2)
  - DIABETES MELLITUS [None]
  - HYPERGLYCAEMIC HYPEROSMOLAR NONKETOTIC SYNDROME [None]
